FAERS Safety Report 16004434 (Version 6)
Quarter: 2022Q4

REPORT INFORMATION
  Report Type: Other
  Country: US (occurrence: None)
  Receive Date: 20190226
  Receipt Date: 20221107
  Transmission Date: 20230113
  Serious: Yes (Hospitalization, Other)
  Sender: FDA-Public Use
  Company Number: US-ROCHE-2269859

PATIENT
  Age: 37 Year
  Sex: Female
  Weight: 96.248 kg

DRUGS (35)
  1. XOLAIR [Suspect]
     Active Substance: OMALIZUMAB
     Indication: Asthma
     Route: 058
     Dates: start: 20190219
  2. XOLAIR [Suspect]
     Active Substance: OMALIZUMAB
     Indication: Urticaria
     Route: 058
  3. XOLAIR [Suspect]
     Active Substance: OMALIZUMAB
     Indication: Intentional product use issue
     Route: 058
     Dates: start: 2017
  4. CATHFLO ACTIVASE [Suspect]
     Active Substance: ALTEPLASE
     Indication: Vascular device occlusion
     Dosage: AS NEEDED
     Route: 065
     Dates: start: 2018
  5. XARELTO [Concomitant]
     Active Substance: RIVAROXABAN
     Indication: Anticoagulant therapy
     Route: 048
     Dates: start: 202105
  6. XARELTO [Concomitant]
     Active Substance: RIVAROXABAN
     Indication: Pulmonary embolism
  7. ALLEGRA [Concomitant]
     Active Substance: FEXOFENADINE HYDROCHLORIDE
     Indication: Mast cell activation syndrome
     Route: 048
  8. METHYLPREDNISOLONE [Concomitant]
     Active Substance: METHYLPREDNISOLONE
     Indication: Mast cell activation syndrome
     Route: 048
  9. FAMOTIDINE [Concomitant]
     Active Substance: FAMOTIDINE
     Route: 048
  10. FAMOTIDINE [Concomitant]
     Active Substance: FAMOTIDINE
     Dosage: 20MG PER 2ML AS NEEDED
     Route: 042
  11. CYPROHEPTADINE HYDROCHLORIDE [Concomitant]
     Active Substance: CYPROHEPTADINE HYDROCHLORIDE
     Route: 048
  12. ZYRTEC [Concomitant]
     Active Substance: CETIRIZINE HYDROCHLORIDE
     Route: 048
  13. SINGULAIR [Concomitant]
     Active Substance: MONTELUKAST SODIUM
     Route: 048
  14. XANAX [Concomitant]
     Active Substance: ALPRAZOLAM
     Dosage: UP TO 3 TIMES DAILY AS NEEDED, USES ONLY FOR SURGERIES
     Route: 048
  15. DIPHENHYDRAMINE [Concomitant]
     Active Substance: DIPHENHYDRAMINE
     Indication: Anaphylactic reaction
     Dosage: 50 TO 100MG WITH A MAXIMUM OF UP TO 600MG PER DAY
     Route: 042
  16. LACTATED RINGERS SOLUTION [Concomitant]
     Active Substance: CALCIUM CHLORIDE\POTASSIUM CHLORIDE\SODIUM CHLORIDE\SODIUM LACTATE
     Dosage: ONCE A DAY FOR 6 DAYS A WEEK
     Route: 042
  17. SOLU-MEDROL [Concomitant]
     Active Substance: METHYLPREDNISOLONE SODIUM SUCCINATE
     Dosage: 125MG/1ML STEPPING DOWN TO 0.25MG/ML AT END OF COURSE, AS NEEDED
     Route: 042
  18. ZOFRAN [Concomitant]
     Active Substance: ONDANSETRON HYDROCHLORIDE
     Indication: Autonomic nervous system imbalance
     Route: 048
  19. ZOFRAN [Concomitant]
     Active Substance: ONDANSETRON HYDROCHLORIDE
     Dosage: 4 TO 8 MG AS NEEDED
     Route: 042
  20. ALBUTEROL [Concomitant]
     Active Substance: ALBUTEROL
     Route: 055
  21. EPIPEN JR [Concomitant]
     Active Substance: EPINEPHRINE
     Indication: Anaphylactic reaction
  22. LIPITOR [Concomitant]
     Active Substance: ATORVASTATIN CALCIUM
     Indication: Hyperlipidaemia
     Route: 048
  23. CARBIDOPA [Concomitant]
     Active Substance: CARBIDOPA
     Indication: Autonomic nervous system imbalance
     Route: 048
  24. CLONIDINE [Concomitant]
     Active Substance: CLONIDINE
     Indication: Autonomic nervous system imbalance
     Route: 048
  25. CLONIDINE [Concomitant]
     Active Substance: CLONIDINE
     Indication: Hypertension
     Dosage: 0.05-0.1MG AS NEEDED
     Route: 048
  26. FOLATE SODIUM [Concomitant]
     Active Substance: FOLATE SODIUM
     Indication: Hyperhomocysteinaemia
     Route: 048
  27. GABAPENTIN [Concomitant]
     Active Substance: GABAPENTIN
     Indication: Ehlers-Danlos syndrome
     Dosage: 400 TO 600MG
     Route: 048
  28. GABAPENTIN [Concomitant]
     Active Substance: GABAPENTIN
     Indication: Autonomic nervous system imbalance
  29. CORLANOR [Concomitant]
     Active Substance: IVABRADINE HYDROCHLORIDE
     Indication: Autonomic nervous system imbalance
     Dosage: 5MG IN MORNING, 2.5MG IN AFTERNOON
     Route: 048
  30. LISINOPRIL [Concomitant]
     Active Substance: LISINOPRIL
     Indication: Autonomic nervous system imbalance
     Route: 048
  31. MELATONIN [Concomitant]
     Active Substance: MELATONIN
     Route: 048
  32. TYLENOL [Concomitant]
     Active Substance: ACETAMINOPHEN
     Indication: Pain
     Dosage: 500-1000MG AS NEEDED
     Route: 048
  33. MIRALAX [Concomitant]
     Active Substance: POLYETHYLENE GLYCOL 3350
     Dosage: ONCE DAILY AS NEEDED
     Route: 048
  34. VALTREX [Concomitant]
     Active Substance: VALACYCLOVIR HYDROCHLORIDE
     Indication: Oral herpes
     Dosage: TWICE DAILY AS NEEDED
     Route: 048
  35. HEPARIN LOCK FLUSH [Concomitant]
     Active Substance: HEPARIN SODIUM
     Dosage: 500USP UNITS/5ML, A FEW TIMES A WEEK WHEN NOT USING PORT

REACTIONS (15)
  - Anaphylactic reaction [Unknown]
  - Sepsis [Unknown]
  - Pulmonary embolism [Unknown]
  - Myasthenia gravis [Not Recovered/Not Resolved]
  - Antiphospholipid syndrome [Not Recovered/Not Resolved]
  - Vascular device occlusion [Not Recovered/Not Resolved]
  - Product quality issue [Not Recovered/Not Resolved]
  - Oxygen saturation decreased [Recovering/Resolving]
  - Off label use [Unknown]
  - Off label use [Unknown]
  - Urticaria [Unknown]
  - Pruritus [Unknown]
  - Flushing [Unknown]
  - Total lung capacity decreased [Not Recovered/Not Resolved]
  - Cerebral disorder [Unknown]

NARRATIVE: CASE EVENT DATE: 20170101
